FAERS Safety Report 9074793 (Version 1)
Quarter: 2013Q1

REPORT INFORMATION
  Report Type: Spontaneous
  Country: US (occurrence: US)
  Receive Date: 20130129
  Receipt Date: 20130129
  Transmission Date: 20140127
  Serious: Yes (Disabling)
  Sender: FDA-Public Use
  Company Number: US-MERCK-1301USA013166

PATIENT
  Sex: 0

DRUGS (1)
  1. FOSAMAX [Suspect]

REACTIONS (2)
  - Bone loss [Unknown]
  - Blood calcium decreased [Unknown]
